FAERS Safety Report 18956689 (Version 1)
Quarter: 2021Q1

REPORT INFORMATION
  Report Type: Spontaneous
  Country: CO (occurrence: CO)
  Receive Date: 20210228
  Receipt Date: 20210228
  Transmission Date: 20210420
  Serious: Yes (Disabling)
  Sender: FDA-Public Use
  Company Number: None

PATIENT
  Age: 47 Year
  Sex: Female
  Weight: 67 kg

DRUGS (18)
  1. ALUMINUM ACETATE [Concomitant]
     Active Substance: ALUMINUM ACETATE
  2. LATANOX [Concomitant]
  3. VITAMIN E [Concomitant]
     Active Substance: .ALPHA.-TOCOPHEROL
  4. LAMOTRIGINA 100 MG OR 200 MG [Suspect]
     Active Substance: LAMOTRIGINE
  5. DIPHENHYDRAMINE. [Concomitant]
     Active Substance: DIPHENHYDRAMINE
  6. TIMOLOL. [Concomitant]
     Active Substance: TIMOLOL
  7. ALUMINUM HYDROXIDE AND SIMETHICONE [Concomitant]
  8. CALENDULA SYRUP [Concomitant]
  9. QUETIAPINE. [Concomitant]
     Active Substance: QUETIAPINE
  10. BIPERIDEN [Concomitant]
     Active Substance: BIPERIDEN
  11. CLONAZEPAM. [Concomitant]
     Active Substance: CLONAZEPAM
  12. PANTOPRAZOLE [Concomitant]
     Active Substance: PANTOPRAZOLE
  13. HUMIDITY [Concomitant]
  14. CALCIUM PLUS VITAMIN D [Concomitant]
     Active Substance: CALCIUM\VITAMIN D
  15. VITAMIN C [Concomitant]
     Active Substance: ASCORBIC ACID
  16. TURMERIC [Concomitant]
     Active Substance: HERBALS\TURMERIC
  17. THIAMINE. [Concomitant]
     Active Substance: THIAMINE
  18. BIOTIN [Concomitant]
     Active Substance: BIOTIN

REACTIONS (15)
  - Condition aggravated [None]
  - Eructation [None]
  - Erosive oesophagitis [None]
  - Haemophagocytic lymphohistiocytosis [None]
  - Choking sensation [None]
  - Hiatus hernia [None]
  - Chills [None]
  - Flatulence [None]
  - Mental disorder [None]
  - Fibromyalgia [None]
  - Chest pain [None]
  - Abdominal pain [None]
  - Withdrawal syndrome [None]
  - Rheumatoid arthritis [None]
  - Hypoaesthesia [None]

NARRATIVE: CASE EVENT DATE: 20190201
